FAERS Safety Report 4370564-5 (Version None)
Quarter: 2004Q2

REPORT INFORMATION
  Report Type: 
  Country: None (occurrence: None)
  Receive Date: 20040603
  Receipt Date: 20040524
  Transmission Date: 20050107
  Serious: No
  Sender: FDA-Public Use
  Company Number: US-MERCK-0405USA01756

PATIENT
  Sex: Female
  Weight: 80 kg

DRUGS (1)
  1. INVANZ [Suspect]
     Route: 065

REACTIONS (3)
  - DYSPNOEA [None]
  - RASH [None]
  - SWELLING FACE [None]
